FAERS Safety Report 5096335-2 (Version None)
Quarter: 2006Q3

REPORT INFORMATION
  Report Type: 
  Country: None (occurrence: None)
  Receive Date: 20060905
  Receipt Date: 20060831
  Transmission Date: 20061208
  Serious: Yes (Other)
  Sender: FDA-Public Use
  Company Number: 2006UW17241

PATIENT
  Sex: Female

DRUGS (3)
  1. ARIMIDEX [Suspect]
     Route: 048
  2. SOY [Concomitant]
  3. VITAMINS [Concomitant]

REACTIONS (3)
  - ERYTHEMA [None]
  - FEELING HOT [None]
  - OEDEMA [None]
